FAERS Safety Report 6914227-8 (Version None)
Quarter: 2010Q3

REPORT INFORMATION
  Report Type: 
  Country: None (occurrence: None)
  Receive Date: 20100809
  Receipt Date: 20100730
  Transmission Date: 20110219
  Serious: Yes (Hospitalization)
  Sender: FDA-Public Use
  Company Number: A0864128A

PATIENT
  Age: 78 Year
  Sex: Male
  Weight: 79.5 kg

DRUGS (18)
  1. AVANDIA [Suspect]
     Indication: DIABETES MELLITUS
     Dosage: 4MG UNKNOWN
     Route: 048
     Dates: start: 20060101, end: 20070801
  2. ALLOPURINOL [Concomitant]
  3. HYDROCHLOROTHIAZIDE [Concomitant]
  4. CITALOPRAM [Concomitant]
  5. LEVOTHYROXINE [Concomitant]
  6. CYANOCOBALAMIN [Concomitant]
  7. ASPIRIN [Concomitant]
  8. PREVACID [Concomitant]
  9. FLOVENT [Concomitant]
  10. COMBIVENT [Concomitant]
  11. SEREVENT [Concomitant]
  12. NIACIN [Concomitant]
  13. MAGNESIUM OXIDE [Concomitant]
  14. COREG [Concomitant]
  15. CRESTOR [Concomitant]
  16. KLOR-CON [Concomitant]
  17. PLAVIX [Concomitant]
  18. METFORMIN HCL [Concomitant]

REACTIONS (4)
  - ARRHYTHMIA [None]
  - CARDIAC FAILURE CONGESTIVE [None]
  - CORONARY ARTERY DISEASE [None]
  - MYOCARDIAL INFARCTION [None]
